FAERS Safety Report 11253054 (Version 1)
Quarter: 2015Q3

REPORT INFORMATION
  Report Type: Spontaneous
  Country: US (occurrence: US)
  Receive Date: 20150709
  Receipt Date: 20150709
  Transmission Date: 20151125
  Serious: No
  Sender: FDA-Public Use
  Company Number: US-009507513-1506USA013151

PATIENT

DRUGS (1)
  1. IMPLANON [Suspect]
     Active Substance: ETONOGESTREL
     Dosage: UNKNOWN
     Route: 059
     Dates: start: 20120228

REACTIONS (3)
  - Incorrect drug administration duration [Unknown]
  - No adverse event [Unknown]
  - Medical device complication [Unknown]

NARRATIVE: CASE EVENT DATE: 20150624
